FAERS Safety Report 25818686 (Version 1)
Quarter: 2025Q3

REPORT INFORMATION
  Report Type: Spontaneous
  Country: EU (occurrence: EU)
  Receive Date: 20250918
  Receipt Date: 20250918
  Transmission Date: 20251020
  Serious: Yes (Life-Threatening, Hospitalization)
  Sender: MERCK SHARP & DOHME LLC
  Company Number: None

PATIENT
  Age: 78 Year
  Sex: Male

DRUGS (8)
  1. KEYTRUDA [Suspect]
     Active Substance: PEMBROLIZUMAB
     Indication: Renal cancer
     Route: 042
     Dates: start: 20250605, end: 20250625
  2. XARELTO 20 mg FILM-COATED TABLETS (28 TABLETS), 28 tablets [Concomitant]
     Route: 048
     Dates: start: 20121106
  3. ATOZET 10 MG/80 MG COMPRIMIDOS RECUBIERTOS CON PELICULA , 30 compri... [Concomitant]
     Route: 048
     Dates: start: 20170508
  4. FUROSEMIDE [Concomitant]
     Active Substance: FUROSEMIDE
     Route: 048
     Dates: start: 20250430
  5. BISOPROLOL COR SANDOZ 2.5 mg COMPRIMIDOS RECUBIERTOS CON PELICULA E... [Concomitant]
     Route: 048
     Dates: start: 20210120
  6. PARACETAMOL CINFA 1 g GENERIC TABLETS, 20 tablets [Concomitant]
     Route: 048
     Dates: start: 20220525
  7. METFORMIN CINFA 850 mg FILM-COATED TABLETS GENERIC, 50 tablets [Concomitant]
     Route: 048
     Dates: start: 20190417
  8. OLMETEC 10 mg COMPRIMIDOS RECUBIERTOS , 28 comprimidos [Concomitant]
     Route: 048
     Dates: start: 20201130

REACTIONS (2)
  - Immune-mediated myositis [Recovering/Resolving]
  - Myasthenic syndrome [Recovering/Resolving]

NARRATIVE: CASE EVENT DATE: 20250625
